FAERS Safety Report 24303427 (Version 1)
Quarter: 2024Q3

REPORT INFORMATION
  Report Type: Spontaneous
  Country: CA (occurrence: CA)
  Receive Date: 20240910
  Receipt Date: 20240910
  Transmission Date: 20241016
  Serious: Yes (Other)
  Sender: COVIS PHARMA
  Company Number: CA-Covis Pharma Europe B.V.-2024COV01103

PATIENT
  Age: 45 Year
  Sex: Female

DRUGS (5)
  1. OMNARIS [Suspect]
     Active Substance: CICLESONIDE
     Route: 045
  2. ADVAIR HFA [Suspect]
     Active Substance: FLUTICASONE PROPIONATE\SALMETEROL XINAFOATE
  3. MEPOLIZUMAB [Suspect]
     Active Substance: MEPOLIZUMAB
     Indication: Asthma
     Route: 058
  4. PREDNISONE [Suspect]
     Active Substance: PREDNISONE
     Route: 048
  5. VENTOLIN [Suspect]
     Active Substance: ALBUTEROL SULFATE

REACTIONS (16)
  - Abortion spontaneous [Unknown]
  - Adenomyosis [Unknown]
  - Deep vein thrombosis [Unknown]
  - Eosinophilic granulomatosis with polyangiitis [Unknown]
  - Exposure during pregnancy [Unknown]
  - Labyrinthitis [Unknown]
  - Livedo reticularis [Unknown]
  - Lung infiltration [Unknown]
  - Mouth ulceration [Unknown]
  - Pericardial drainage [Unknown]
  - Pericarditis [Unknown]
  - Peripheral sensory neuropathy [Unknown]
  - Pleurisy [Unknown]
  - Pulmonary mass [Unknown]
  - Sinusitis [Unknown]
  - Skin mass [Unknown]
